FAERS Safety Report 18049286 (Version 1)
Quarter: 2020Q3

REPORT INFORMATION
  Report Type: Report from Study
  Country: US (occurrence: US)
  Receive Date: 20200721
  Receipt Date: 20200721
  Transmission Date: 20201103
  Serious: Yes (Death)
  Sender: FDA-Public Use
  Company Number: US-MYLANLABS-2020M1065555

PATIENT
  Age: 50 Year

DRUGS (14)
  1. OFATUMUMAB [Suspect]
     Active Substance: OFATUMUMAB
     Indication: NEOPLASM MALIGNANT
     Dosage: 300 MG, ON DAY 1 OF COURSE ONE
     Route: 042
  2. OFATUMUMAB [Suspect]
     Active Substance: OFATUMUMAB
     Dosage: 2000 MILLIGRAM, ON DAY 11 OF COURSE THREE AND ON DAYS..
     Route: 042
  3. CYTARABINE. [Suspect]
     Active Substance: CYTARABINE
     Indication: NEOPLASM MALIGNANT
     Dosage: 3 G/M2 INTRAVENOUSLY OVER 2 H EVERY 12 H...
     Route: 042
  4. METHOTREXATE. [Suspect]
     Active Substance: METHOTREXATE
     Indication: PROPHYLAXIS
     Dosage: 800 MILLIGRAM/SQ. METER; ON DAY 1 OF COURSES TWO...
     Route: 042
  5. CYTARABINE. [Suspect]
     Active Substance: CYTARABINE
     Indication: PROPHYLAXIS
     Dosage: 100 MILLIGRAM, ON DAY 7 DURING THE FIRST FOUR..
     Route: 037
  6. VINCRISTINE [Suspect]
     Active Substance: VINCRISTINE
     Indication: NEOPLASM MALIGNANT
     Dosage: 2 MILLIGRAM, ON DAYS 4 AND 11 ON ..
     Route: 042
  7. LEUCOVORIN                         /00566701/ [Concomitant]
     Active Substance: LEUCOVORIN
     Dosage: 15 MILLIGRAM, Q6H; EIGHT DOSES
     Route: 042
  8. METHOTREXATE. [Suspect]
     Active Substance: METHOTREXATE
     Indication: NEOPLASM MALIGNANT
     Dosage: 200 MILLIGRAM/SQ. METER; ON DAY 1 OF COURSES TWO...
     Route: 042
  9. CYCLOPHOSPHAMIDE. [Suspect]
     Active Substance: CYCLOPHOSPHAMIDE
     Indication: NEOPLASM MALIGNANT
     Dosage: 300 MILLIGRAM/SQ. METER, BID,OVER 3 H EVERY 12 H FOR SIX DOSES...
     Route: 042
  10. DOXORUBICIN [Suspect]
     Active Substance: DOXORUBICIN
     Indication: NEOPLASM MALIGNANT
     Dosage: 50 MILLIGRAM/SQ. METER, OVER 24 H ON DAY 4..
     Route: 042
  11. METHOTREXATE. [Suspect]
     Active Substance: METHOTREXATE
     Dosage: 12 MILLIGRAM; ON DAY 2 DURING THE FIRST FOUR COURSES ..
     Route: 037
  12. MESNA. [Concomitant]
     Active Substance: MESNA
     Indication: NEOPLASM MALIGNANT
     Dosage: 600 MILLIGRAM/SQ. METER, QD; GIVEN AS A CONTINUOUS INTRAVENOUS INFUSION...
     Route: 042
  13. LEUCOVORIN                         /00566701/ [Concomitant]
     Active Substance: LEUCOVORIN
     Indication: NEOPLASM MALIGNANT
     Dosage: 50 MILLIGRAM, STARTING 12H AFTER THE END OF ..
     Route: 042
  14. DEXAMETHASONE. [Suspect]
     Active Substance: DEXAMETHASONE
     Indication: NEOPLASM MALIGNANT
     Dosage: 40 MILLIGRAM, QD; ON DAYS 1?4 AND ..
     Route: 065

REACTIONS (1)
  - Infection [Fatal]
